FAERS Safety Report 10750313 (Version 1)
Quarter: 2015Q1

REPORT INFORMATION
  Report Type: Spontaneous
  Country: DE (occurrence: DE)
  Receive Date: 20150130
  Receipt Date: 20150130
  Transmission Date: 20150721
  Serious: Yes (Hospitalization)
  Sender: FDA-Public Use
  Company Number: DE-ROCHE-1526938

PATIENT
  Age: 79 Year
  Sex: Female

DRUGS (1)
  1. HERCEPTIN [Suspect]
     Active Substance: TRASTUZUMAB
     Indication: BREAST CANCER
     Route: 042
     Dates: start: 20140820

REACTIONS (2)
  - Hypersensitivity [Recovering/Resolving]
  - Anterograde amnesia [Recovering/Resolving]

NARRATIVE: CASE EVENT DATE: 20140820
